FAERS Safety Report 6380609-9 (Version None)
Quarter: 2009Q3

REPORT INFORMATION
  Report Type: 
  Country: None (occurrence: None)
  Receive Date: 20090929
  Receipt Date: 20090915
  Transmission Date: 20100115
  Serious: Yes (Hospitalization)
  Sender: FDA-Public Use
  Company Number: IN-MYLANLABS-2009S1016172

PATIENT
  Age: 48 Year
  Sex: Female

DRUGS (5)
  1. CYCLOSPORINE [Suspect]
     Indication: IMMUNOSUPPRESSION
     Dates: start: 20050101, end: 20050101
  2. CYCLOSPORINE [Suspect]
     Dates: start: 20050101, end: 20050101
  3. AZATHIOPRINE [Suspect]
     Indication: IMMUNOSUPPRESSION
     Dates: start: 20050101, end: 20050101
  4. HEPARIN [Suspect]
     Dates: start: 20050101, end: 20050101
  5. HEPARIN [Suspect]
     Dates: start: 20050101

REACTIONS (1)
  - THROMBOTIC MICROANGIOPATHY [None]
